FAERS Safety Report 5247210-1 (Version None)
Quarter: 2007Q1

REPORT INFORMATION
  Report Type: 
  Country: None (occurrence: None)
  Receive Date: 20070220
  Receipt Date: 20070206
  Transmission Date: 20070707
  Serious: Yes (Hospitalization, Other)
  Sender: FDA-Public Use
  Company Number: 2007US-05697

PATIENT
  Age: 76 Year
  Sex: Female

DRUGS (4)
  1. SIMVASTATIN [Suspect]
     Indication: BLOOD CHOLESTEROL INCREASED
     Dosage: 80 MG QD
     Dates: start: 20061109, end: 20070109
  2. COZAAR [Concomitant]
  3. METROPOLO [Concomitant]
  4. PLAVIX [Concomitant]

REACTIONS (2)
  - ANGIOPLASTY [None]
  - RHABDOMYOLYSIS [None]
